FAERS Safety Report 7250472-2 (Version None)
Quarter: 2011Q1

REPORT INFORMATION
  Report Type: 
  Country: None (occurrence: None)
  Receive Date: 20110128
  Receipt Date: 20110124
  Transmission Date: 20110831
  Serious: Yes (Hospitalization)
  Sender: FDA-Public Use
  Company Number: MX-SHIRE-SPV1-2010-02064

PATIENT
  Age: 11 Year
  Sex: Male

DRUGS (1)
  1. ELAPRASE [Suspect]
     Indication: MUCOPOLYSACCHARIDOSIS II
     Dosage: 0.5 MG/KG, UNK
     Route: 041
     Dates: start: 20080818

REACTIONS (3)
  - INFUSION RELATED REACTION [None]
  - LARYNGEAL OEDEMA [None]
  - RASH [None]
